FAERS Safety Report 5820998-4 (Version None)
Quarter: 2008Q3

REPORT INFORMATION
  Report Type: 
  Country: None (occurrence: None)
  Receive Date: 20080724
  Receipt Date: 20080715
  Transmission Date: 20090109
  Serious: Yes (Other)
  Sender: FDA-Public Use
  Company Number: US-JNJFOC-20080704900

PATIENT
  Sex: Female
  Weight: 46.72 kg

DRUGS (4)
  1. LEVAQUIN [Suspect]
     Indication: PNEUMONIA
     Dosage: 750MG/DAILY/ORALX10DAYS
     Route: 048
  2. VICODEN [Concomitant]
  3. NAPROSEN [Concomitant]
  4. YASMIN [Concomitant]
     Indication: CONTRACEPTION

REACTIONS (27)
  - ABDOMINAL DISTENSION [None]
  - CHEST PAIN [None]
  - DEPRESSION [None]
  - DYSGEUSIA [None]
  - DYSPEPSIA [None]
  - ENDODONTIC PROCEDURE [None]
  - FATIGUE [None]
  - GAIT DISTURBANCE [None]
  - GASTRIC DISORDER [None]
  - HALLUCINATION [None]
  - HEART RATE INCREASED [None]
  - INFLAMMATION [None]
  - JOINT SWELLING [None]
  - LYMPHADENITIS [None]
  - MENISCUS LESION [None]
  - MUSCULOSKELETAL STIFFNESS [None]
  - NIGHT SWEATS [None]
  - PALPITATIONS [None]
  - PANIC ATTACK [None]
  - PARAESTHESIA [None]
  - PARANOIA [None]
  - PERIPHERAL COLDNESS [None]
  - THIRST [None]
  - TOOTH DISORDER [None]
  - URINARY INCONTINENCE [None]
  - VISION BLURRED [None]
  - WEIGHT DECREASED [None]
